FAERS Safety Report 10009226 (Version 2)
Quarter: 2014Q1

REPORT INFORMATION
  Report Type: Spontaneous
  Country: US (occurrence: US)
  Receive Date: 20140313
  Receipt Date: 20140313
  Transmission Date: 20141002
  Serious: No
  Sender: FDA-Public Use
  Company Number: US-GILEAD-2013-0072774

PATIENT
  Sex: Male

DRUGS (9)
  1. LETAIRIS [Suspect]
     Indication: PULMONARY HYPERTENSION
     Dosage: 5 MG, QD
     Dates: start: 20111114
  2. LETAIRIS [Suspect]
     Indication: SUBSTANCE USE
  3. OMEPRAZOLE [Concomitant]
  4. BYSTOLIC [Concomitant]
  5. ADCIRCA [Concomitant]
  6. FUROSEMIDE [Concomitant]
  7. KLOR-CON [Concomitant]
  8. REMODULIN [Concomitant]
  9. OXYCODONE [Concomitant]

REACTIONS (1)
  - Anaemia [Not Recovered/Not Resolved]
